FAERS Safety Report 7304110-0 (Version None)
Quarter: 2011Q1

REPORT INFORMATION
  Report Type: 
  Country: None (occurrence: None)
  Receive Date: 20110221
  Receipt Date: 20110215
  Transmission Date: 20110831
  Serious: Yes (Death, Hospitalization, Disabling, Other)
  Sender: FDA-Public Use
  Company Number: PHHY2010JP36326

PATIENT
  Sex: Female
  Weight: 87 kg

DRUGS (10)
  1. SUMIFERON [Concomitant]
     Indication: METASTATIC RENAL CELL CARCINOMA
     Dosage: 3000000IU
     Dates: start: 20080623, end: 20090914
  2. UFT [Concomitant]
     Indication: METASTATIC RENAL CELL CARCINOMA
     Dosage: 4 DF, UNK
     Route: 048
     Dates: start: 20010315, end: 20090908
  3. TAKEPRON [Concomitant]
     Dosage: 30 MG, UNK
     Route: 048
     Dates: start: 20100422, end: 20100713
  4. SUTENT [Concomitant]
     Indication: METASTATIC RENAL CELL CARCINOMA
     Dosage: 37.5 MG
     Route: 048
     Dates: start: 20090915, end: 20100328
  5. BETAMETHASONE [Concomitant]
     Indication: METASTATIC RENAL CELL CARCINOMA
     Dosage: 1.0 MG, UNK
     Route: 048
     Dates: start: 20100422
  6. FLOMOX [Concomitant]
     Dosage: 300 MG, UNK
     Route: 058
     Dates: start: 20100713, end: 20100728
  7. AFINITOR [Suspect]
     Indication: METASTATIC RENAL CELL CARCINOMA
     Dosage: 10 MG  DAILY
     Route: 048
     Dates: start: 20100422, end: 20100520
  8. MORPHINE HYDROCHLORIDE [Concomitant]
     Indication: DYSPNOEA
     Dosage: 50 MG, UNK
     Route: 048
     Dates: start: 20100728
  9. ZYLORIC [Concomitant]
     Dosage: 200 MG, UNK
     Route: 048
     Dates: start: 20100422, end: 20100713
  10. SELBEX [Concomitant]
     Dosage: 100 MG, UNK
     Route: 048
     Dates: start: 20100422, end: 20100713

REACTIONS (22)
  - NEOPLASM MALIGNANT [None]
  - PULMONARY OEDEMA [None]
  - PYREXIA [None]
  - GENERALISED OEDEMA [None]
  - INTERSTITIAL LUNG DISEASE [None]
  - LIVER DISORDER [None]
  - BLOOD GLUCOSE INCREASED [None]
  - BLOOD LACTATE DEHYDROGENASE INCREASED [None]
  - BLOOD UREA INCREASED [None]
  - BLOOD CREATININE INCREASED [None]
  - GENERAL PHYSICAL HEALTH DETERIORATION [None]
  - HAEMOGLOBIN DECREASED [None]
  - MONOCYTE PERCENTAGE DECREASED [None]
  - RENAL IMPAIRMENT [None]
  - LYMPHOCYTE COUNT DECREASED [None]
  - COUGH [None]
  - DYSPNOEA [None]
  - RESPIRATORY DISORDER [None]
  - LUNG DISORDER [None]
  - CELLULITIS [None]
  - METASTATIC RENAL CELL CARCINOMA [None]
  - NEPHROGENIC ANAEMIA [None]
